FAERS Safety Report 18709362 (Version 1)
Quarter: 2021Q1

REPORT INFORMATION
  Report Type: Spontaneous
  Country: US (occurrence: US)
  Receive Date: 20210107
  Receipt Date: 20210107
  Transmission Date: 20210419
  Serious: Yes (Hospitalization, Other)
  Sender: FDA-Public Use
  Company Number: US-DRREDDYS-USA/USA/21/0130723

PATIENT
  Age: 71 Year
  Sex: Male

DRUGS (1)
  1. IMATINIB MESYLATE TABLETS [Suspect]
     Active Substance: IMATINIB MESYLATE
     Indication: CHRONIC MYELOID LEUKAEMIA

REACTIONS (6)
  - Diarrhoea [Unknown]
  - Pneumocystis jirovecii pneumonia [Unknown]
  - Lymphopenia [Unknown]
  - Septic shock [Unknown]
  - Monocytopenia [Unknown]
  - Acute respiratory distress syndrome [Unknown]
